FAERS Safety Report 4478184-9 (Version None)
Quarter: 2004Q4

REPORT INFORMATION
  Report Type: 
  Country: None (occurrence: None)
  Receive Date: 20041018
  Receipt Date: 20041018
  Transmission Date: 20050328
  Serious: Yes (Hospitalization)
  Sender: FDA-Public Use
  Company Number: None

PATIENT
  Age: 73 Year

DRUGS (8)
  1. PROPAFENONE HYDROCHLORIDE [Suspect]
     Indication: ARRHYTHMIA
     Dosage: 150MG TID
     Dates: start: 20010101
  2. VERAPAMIL [Concomitant]
  3. LEVOTHYROXINE SODIUM [Concomitant]
  4. GABAPENTIN [Concomitant]
  5. DIGOXIN [Concomitant]
  6. FELODIPINE [Concomitant]
  7. KCL TAB [Concomitant]
  8. ASPIRIN [Concomitant]

REACTIONS (2)
  - PHOTOPSIA [None]
  - VISUAL DISTURBANCE [None]
